FAERS Safety Report 9889166 (Version 2)
Quarter: 2014Q2

REPORT INFORMATION
  Report Type: Spontaneous
  Country: US (occurrence: US)
  Receive Date: 20140211
  Receipt Date: 20140520
  Transmission Date: 20141212
  Serious: No
  Sender: FDA-Public Use
  Company Number: US-ELI_LILLY_AND_COMPANY-US201402000210

PATIENT
  Sex: Female

DRUGS (2)
  1. HUMALOG 25% LISPRO, 75% NPL [Suspect]
     Indication: TYPE 2 DIABETES MELLITUS
     Dosage: 70 U, EACH MORNING
     Dates: start: 201301
  2. HUMALOG 25% LISPRO, 75% NPL [Suspect]
     Dosage: 25 U, EACH EVENING
     Dates: start: 201301

REACTIONS (2)
  - Glaucoma [Not Recovered/Not Resolved]
  - Visual acuity reduced [Unknown]
